FAERS Safety Report 9383374 (Version 1)
Quarter: 2013Q3

REPORT INFORMATION
  Report Type: Spontaneous
  Country: DK (occurrence: DK)
  Receive Date: 20130704
  Receipt Date: 20130704
  Transmission Date: 20140515
  Serious: Yes (Hospitalization)
  Sender: FDA-Public Use
  Company Number: DK-009507513-1306DNK010940

PATIENT
  Age: 32 Year
  Sex: Female

DRUGS (1)
  1. MARVELON [Suspect]
     Indication: CONTRACEPTION
     Route: 048
     Dates: start: 1991, end: 20080123

REACTIONS (2)
  - Deep vein thrombosis [Recovered/Resolved]
  - Pain in extremity [Recovered/Resolved]
